FAERS Safety Report 14279167 (Version 1)
Quarter: 2017Q4

REPORT INFORMATION
  Report Type: Spontaneous
  Country: US (occurrence: US)
  Receive Date: 20171212
  Receipt Date: 20171212
  Transmission Date: 20180321
  Serious: Yes (Hospitalization)
  Sender: FDA-Public Use
  Company Number: US-BEH-2017085764

PATIENT
  Age: 69 Year
  Sex: Male
  Weight: 109.75 kg

DRUGS (30)
  1. HIZENTRA [Suspect]
     Active Substance: HUMAN IMMUNOGLOBULIN G
     Dosage: UNK
     Route: 058
  2. MICARDIS [Concomitant]
     Active Substance: TELMISARTAN
  3. DOXYCYCLINE HYCLATE. [Concomitant]
     Active Substance: DOXYCYCLINE HYCLATE
  4. XARELTO [Concomitant]
     Active Substance: RIVAROXABAN
  5. VITAMIN B12 [Concomitant]
     Active Substance: CYANOCOBALAMIN
  6. PROTONIX [Concomitant]
     Active Substance: PANTOPRAZOLE SODIUM
  7. SINGULAIR [Concomitant]
     Active Substance: MONTELUKAST SODIUM
  8. FUROSEMIDE. [Concomitant]
     Active Substance: FUROSEMIDE
  9. DIFLUCAN [Concomitant]
     Active Substance: FLUCONAZOLE
  10. FAMOTIDINE. [Concomitant]
     Active Substance: FAMOTIDINE
  11. NORVASC [Concomitant]
     Active Substance: AMLODIPINE BESYLATE
  12. IPRATROPIUM BROMIDE. [Concomitant]
     Active Substance: IPRATROPIUM BROMIDE
  13. BISOPROLOL FUMARATE. [Concomitant]
     Active Substance: BISOPROLOL FUMARATE
  14. COENZYME Q10 [Concomitant]
     Active Substance: UBIDECARENONE
  15. EPINEPHRINE. [Concomitant]
     Active Substance: EPINEPHRINE
  16. PANTOPRAZOLE [Concomitant]
     Active Substance: PANTOPRAZOLE
  17. ASPIRIN. [Concomitant]
     Active Substance: ASPIRIN
  18. FLUTICASONE. [Concomitant]
     Active Substance: FLUTICASONE
  19. DIPHENHYDRAMINE. [Concomitant]
     Active Substance: DIPHENHYDRAMINE
  20. FUROSEMIDE. [Concomitant]
     Active Substance: FUROSEMIDE
  21. ZANTAC [Concomitant]
     Active Substance: RANITIDINE HYDROCHLORIDE
  22. AMLODIPINE [Concomitant]
     Active Substance: AMLODIPINE BESYLATE
  23. HIZENTRA [Suspect]
     Active Substance: HUMAN IMMUNOGLOBULIN G
     Indication: IMMUNODEFICIENCY COMMON VARIABLE
     Dosage: 20 G, QW
     Route: 058
     Dates: start: 20120725
  24. CRESTOR [Concomitant]
     Active Substance: ROSUVASTATIN CALCIUM
  25. VITAMIN C [Concomitant]
     Active Substance: ASCORBIC ACID
  26. ALBUTEROL                          /00139501/ [Concomitant]
     Active Substance: ALBUTEROL
  27. SYMBICORT [Concomitant]
     Active Substance: BUDESONIDE\FORMOTEROL FUMARATE DIHYDRATE
  28. PROAIR HFA [Concomitant]
     Active Substance: ALBUTEROL SULFATE
  29. SPIRIVA [Concomitant]
     Active Substance: TIOTROPIUM BROMIDE MONOHYDRATE
  30. SPIRONOLACTONE. [Concomitant]
     Active Substance: SPIRONOLACTONE

REACTIONS (1)
  - Stent placement [Unknown]

NARRATIVE: CASE EVENT DATE: 20171129
